FAERS Safety Report 8334294-7 (Version None)
Quarter: 2012Q1

REPORT INFORMATION
  Report Type: 
  Country: None (occurrence: None)
  Receive Date: 20120329
  Receipt Date: 20100514
  Transmission Date: 20120608
  Serious: Yes (Other)
  Sender: FDA-Public Use
  Company Number: PHHY2010US31610

PATIENT
  Age: 79 Year
  Sex: Female

DRUGS (1)
  1. EXELON [Suspect]
     Dosage: 9.5 MG, TRANSDERMAL
     Route: 062

REACTIONS (4)
  - NERVOUSNESS [None]
  - DEPRESSED MOOD [None]
  - CONFUSIONAL STATE [None]
  - MEMORY IMPAIRMENT [None]
